FAERS Safety Report 5740845-9 (Version None)
Quarter: 2008Q2

REPORT INFORMATION
  Report Type: 
  Country: None (occurrence: None)
  Receive Date: 20080515
  Receipt Date: 20080402
  Transmission Date: 20081010
  Serious: No
  Sender: FDA-Public Use
  Company Number: WAES 0804USA01033

PATIENT
  Age: 41 Year
  Sex: Male

DRUGS (4)
  1. ISENTRESS [Suspect]
     Indication: ACQUIRED IMMUNODEFICIENCY SYNDROME
     Dosage: 400 MG/BID/PO
     Route: 048
     Dates: start: 20080101
  2. EPIVIR [Concomitant]
  3. REYATAZ [Concomitant]
  4. TRUVADA [Concomitant]

REACTIONS (1)
  - BLOOD BILIRUBIN INCREASED [None]
